FAERS Safety Report 6332272-0 (Version None)
Quarter: 2009Q3

REPORT INFORMATION
  Report Type: 
  Country: None (occurrence: None)
  Receive Date: 20090828
  Receipt Date: 20090817
  Transmission Date: 20100115
  Serious: Yes (Life-Threatening, Hospitalization)
  Sender: FDA-Public Use
  Company Number: JP-PFIZER INC-2009257320

PATIENT
  Age: 19 Year

DRUGS (2)
  1. ZITHROMAX [Suspect]
     Dosage: UNK
     Route: 048
     Dates: start: 20090114, end: 20090408
  2. STOCRIN [Suspect]
     Dosage: UNK
     Route: 048
     Dates: start: 20090220, end: 20090408

REACTIONS (1)
  - AGRANULOCYTOSIS [None]
